FAERS Safety Report 4297083-9 (Version None)
Quarter: 2004Q1

REPORT INFORMATION
  Report Type: 
  Country: None (occurrence: None)
  Receive Date: 20040213
  Receipt Date: 20040203
  Transmission Date: 20041129
  Serious: Yes (Life-Threatening, Hospitalization)
  Sender: FDA-Public Use
  Company Number: US-SHR-04-020677

PATIENT
  Age: 72 Year
  Sex: Male
  Weight: 108.4 kg

DRUGS (6)
  1. GM-CSF (SARGRAMOSTIM) INJECTION [Suspect]
     Indication: COLONY STIMULATING FACTOR PROPHYLAXIS
     Dosage: SEE IMAGE
     Route: 058
     Dates: start: 20040130, end: 20040201
  2. GM-CSF (SARGRAMOSTIM) INJECTION [Suspect]
     Indication: COLONY STIMULATING FACTOR PROPHYLAXIS
     Dosage: SEE IMAGE
     Route: 058
     Dates: start: 20040202, end: 20040202
  3. TAXOTERE [Concomitant]
  4. GEMZAR [Concomitant]
  5. AREDIA [Concomitant]
  6. DECADRON [Concomitant]

REACTIONS (2)
  - FALL [None]
  - HYPERSENSITIVITY [None]
